FAERS Safety Report 8082974-3 (Version None)
Quarter: 2012Q1

REPORT INFORMATION
  Report Type: 
  Country: None (occurrence: None)
  Receive Date: 20120127
  Receipt Date: 20110309
  Transmission Date: 20120608
  Serious: No
  Sender: FDA-Public Use
  Company Number: US-ABBOTT-11P-163-0710373-00

PATIENT
  Sex: Male

DRUGS (4)
  1. METHOTREXATE [Concomitant]
     Indication: PSORIASIS
  2. HUMIRA [Suspect]
     Indication: PSORIASIS
     Dates: start: 20101202
  3. MOBIC [Concomitant]
     Indication: TENOSYNOVITIS STENOSANS
     Dates: start: 20110302
  4. INSULIN [Concomitant]
     Indication: DIABETES MELLITUS
     Route: 050

REACTIONS (1)
  - MUSCULOSKELETAL STIFFNESS [None]
